FAERS Safety Report 21625618 (Version 1)
Quarter: 2022Q4

REPORT INFORMATION
  Report Type: Spontaneous
  Country: US (occurrence: None)
  Receive Date: 20221122
  Receipt Date: 20221122
  Transmission Date: 20230112
  Serious: No
  Sender: FDA-Public Use
  Company Number: US-ROCHE-3054371

PATIENT
  Sex: Female
  Weight: 65.376 kg

DRUGS (2)
  1. HERCEPTIN [Suspect]
     Active Substance: TRASTUZUMAB
     Indication: Breast cancer
     Dosage: ONCE EVERY 21 DAYS ;ONGOING: NO
     Route: 042
     Dates: start: 202103
  2. PERJETA [Suspect]
     Active Substance: PERTUZUMAB
     Indication: Breast cancer
     Dosage: ONCE EVERY  21 DAYS ;ONGOING: NO
     Route: 042
     Dates: start: 202103

REACTIONS (1)
  - Maternal exposure during pregnancy [Unknown]
